FAERS Safety Report 9310647 (Version 2)
Quarter: 2013Q3

REPORT INFORMATION
  Report Type: Spontaneous
  Country: US (occurrence: US)
  Receive Date: 20130527
  Receipt Date: 20130710
  Transmission Date: 20140515
  Serious: No
  Sender: FDA-Public Use
  Company Number: US-009507513-1305USA010349

PATIENT
  Sex: Female

DRUGS (6)
  1. ASMANEX TWISTHALER [Suspect]
     Indication: ASTHMA
     Dosage: 110 MG/ ^ONE PUFF, ONCE DAILY^
     Route: 055
     Dates: start: 20130110
  2. ASMANEX TWISTHALER [Suspect]
     Dosage: 220 MG/ ^ONE PUFF, ONCE DAILY^
     Route: 055
     Dates: end: 201303
  3. SYMBICORT [Concomitant]
  4. SPIRIVA [Concomitant]
  5. ADVAIR [Concomitant]
  6. PRADAXA [Concomitant]
     Dosage: 220 MG, UNK
     Route: 055

REACTIONS (4)
  - Drug ineffective [Recovering/Resolving]
  - Dry mouth [Unknown]
  - Palpitations [Unknown]
  - Candida infection [Unknown]
